FAERS Safety Report 11230027 (Version 2)
Quarter: 2015Q3

REPORT INFORMATION
  Report Type: Spontaneous
  Country: JP (occurrence: JP)
  Receive Date: 20150701
  Receipt Date: 20150709
  Transmission Date: 20151125
  Serious: Yes (Hospitalization)
  Sender: FDA-Public Use
  Company Number: JP-ROCHE-1600320

PATIENT
  Age: 8 Year
  Sex: Female

DRUGS (6)
  1. CELLCEPT [Suspect]
     Active Substance: MYCOPHENOLATE MOFETIL\MYCOPHENOLATE MOFETIL HYDROCHLORIDE
     Indication: HENOCH-SCHONLEIN PURPURA NEPHRITIS
     Dosage: DOSAGE IS UNCERTAIN.
     Route: 048
  2. PREDNISOLONE. [Concomitant]
     Active Substance: PREDNISOLONE
     Indication: HENOCH-SCHONLEIN PURPURA NEPHRITIS
     Dosage: DOSAGE IS UNCERTAIN.
     Route: 048
  3. CYCLOPHOSPHAMIDE. [Concomitant]
     Active Substance: CYCLOPHOSPHAMIDE
  4. CICLOSPORIN [Concomitant]
     Active Substance: CYCLOSPORINE
     Indication: HENOCH-SCHONLEIN PURPURA NEPHRITIS
     Dosage: DOSAGE IS UNCERTAIN.
     Route: 048
  5. PREDNISOLONE. [Concomitant]
     Active Substance: PREDNISOLONE
     Indication: HENOCH-SCHONLEIN PURPURA NEPHRITIS
     Dosage: DOSAGE IS UNCERTAIN.
     Route: 048
  6. FUROSEMIDE. [Concomitant]
     Active Substance: FUROSEMIDE

REACTIONS (8)
  - Renal impairment [Unknown]
  - Biliary colic [Unknown]
  - Respiratory tract infection [Unknown]
  - Off label use [Unknown]
  - Henoch-Schonlein purpura nephritis [Unknown]
  - Pericardial effusion [Unknown]
  - Diarrhoea [Unknown]
  - Cardiac tamponade [Unknown]
